FAERS Safety Report 14488646 (Version 5)
Quarter: 2018Q4

REPORT INFORMATION
  Report Type: Report from Study
  Country: US (occurrence: US)
  Receive Date: 20180205
  Receipt Date: 20181024
  Transmission Date: 20190204
  Serious: Yes (Hospitalization)
  Sender: FDA-Public Use
  Company Number: US-ACTELION-A-NJ2017-162498

PATIENT
  Age: 72 Year
  Sex: Female
  Weight: 57.6 kg

DRUGS (7)
  1. ADCIRCA [Concomitant]
     Active Substance: TADALAFIL
  2. ELIQUIS [Concomitant]
     Active Substance: APIXABAN
  3. OPSUMIT [Suspect]
     Active Substance: MACITENTAN
     Indication: PULMONARY HYPERTENSION
     Dosage: 10 MG, QD
     Route: 048
  4. TYVASO [Suspect]
     Active Substance: TREPROSTINIL
     Indication: PRODUCT USED FOR UNKNOWN INDICATION
     Dosage: 5 BREATHS, Q6HRS
     Route: 065
  5. TYVASO [Suspect]
     Active Substance: TREPROSTINIL
     Dosage: 6 BREATHS, Q6HRS
     Route: 065
     Dates: start: 20171115
  6. WARFARIN [Concomitant]
     Active Substance: WARFARIN
  7. UPTRAVI [Concomitant]
     Active Substance: SELEXIPAG

REACTIONS (14)
  - Fluid overload [Unknown]
  - Dyspnoea exertional [Not Recovered/Not Resolved]
  - Diarrhoea [Unknown]
  - Stent placement [Unknown]
  - Fluid retention [Unknown]
  - Anaemia [Unknown]
  - Dyspnoea [Not Recovered/Not Resolved]
  - Disease progression [Unknown]
  - Malaise [Not Recovered/Not Resolved]
  - Nephrolithiasis [Unknown]
  - Renal stone removal [Unknown]
  - Nausea [Unknown]
  - Respiratory rate decreased [Unknown]
  - Nocturnal dyspnoea [Unknown]

NARRATIVE: CASE EVENT DATE: 20171114
